FAERS Safety Report 14440356 (Version 1)
Quarter: 2018Q1

REPORT INFORMATION
  Report Type: Spontaneous
  Country: US (occurrence: US)
  Receive Date: 20180125
  Receipt Date: 20180125
  Transmission Date: 20180509
  Serious: No
  Sender: FDA-Public Use
  Company Number: US-ABBVIE-17K-163-1979407-00

PATIENT
  Age: 54 Year
  Sex: Female

DRUGS (2)
  1. HUMIRA [Suspect]
     Active Substance: ADALIMUMAB
     Indication: PSORIATIC ARTHROPATHY
     Route: 058
     Dates: start: 20170414, end: 20170428
  2. HUMIRA [Suspect]
     Active Substance: ADALIMUMAB
     Indication: PSORIASIS
     Route: 058
     Dates: start: 20170407, end: 20170407

REACTIONS (6)
  - Breast tenderness [Recovered/Resolved]
  - Psoriasis [Recovering/Resolving]
  - Vaginal discharge [Recovered/Resolved]
  - Rash [Recovered/Resolved]
  - Alopecia [Recovering/Resolving]
  - Postmenopausal haemorrhage [Recovering/Resolving]

NARRATIVE: CASE EVENT DATE: 201704
